FAERS Safety Report 19216352 (Version 1)
Quarter: 2021Q2

REPORT INFORMATION
  Report Type: Spontaneous
  Country: US (occurrence: US)
  Receive Date: 20210504
  Receipt Date: 20210504
  Transmission Date: 20210717
  Serious: No
  Sender: FDA-Public Use
  Company Number: None

PATIENT
  Age: 66 Year
  Sex: Female
  Weight: 99.79 kg

DRUGS (2)
  1. STELARA [Suspect]
     Active Substance: USTEKINUMAB
     Indication: PSORIASIS
     Dosage: OTHER FREQUENCY:DAY  0 AND DAY 28 THEN EVERY 12 WEEKS AS DIRECTED?
     Route: 058
     Dates: start: 201512
  2. STELARA [Suspect]
     Active Substance: USTEKINUMAB
     Indication: PSORIATIC ARTHROPATHY
     Dosage: OTHER FREQUENCY:DAY  0 AND DAY 28 THEN EVERY 12 WEEKS AS DIRECTED?
     Route: 058
     Dates: start: 201512

REACTIONS (4)
  - Fractured coccyx [None]
  - Kidney infection [None]
  - Cystitis [None]
  - Fall [None]
